FAERS Safety Report 6163966-8 (Version None)
Quarter: 2009Q2

REPORT INFORMATION
  Report Type: 
  Country: None (occurrence: None)
  Receive Date: 20090420
  Receipt Date: 20090409
  Transmission Date: 20091009
  Serious: Yes (Hospitalization)
  Sender: FDA-Public Use
  Company Number: THQ2009A02144

PATIENT
  Age: 54 Year
  Sex: Female

DRUGS (11)
  1. PIOGLITAZONE HCL [Suspect]
     Indication: TYPE 2 DIABETES MELLITUS
     Dosage: 30 MG (1 D); 45 MG (1 D)
     Route: 048
     Dates: start: 20081027, end: 20081125
  2. PIOGLITAZONE HCL [Suspect]
     Indication: TYPE 2 DIABETES MELLITUS
     Dosage: 30 MG (1 D); 45 MG (1 D)
     Route: 048
     Dates: start: 20081126, end: 20090310
  3. PLACEBO BASELINE THERAPY (PLACEBO) [Suspect]
     Dosage: 2 TAB (1 D)
     Route: 048
     Dates: start: 20081014, end: 20081014
  4. PLACEBO BASELINE THERAPY (PLACEBO) [Suspect]
     Dosage: 2 TAB (1 D)
     Route: 048
     Dates: start: 20081015, end: 20081026
  5. PLACEBO [Suspect]
     Indication: TYPE 2 DIABETES MELLITUS
     Dosage: ORAL
     Route: 048
     Dates: start: 20081027, end: 20090310
  6. ATENOLOL [Concomitant]
  7. GLYCEROL 2.6% [Concomitant]
  8. LOVASTATIN [Concomitant]
  9. AMLODIPINE [Concomitant]
  10. ASPIRIN [Concomitant]
  11. ENALAPRIL MALEATE [Concomitant]

REACTIONS (4)
  - ANGINA UNSTABLE [None]
  - CARDIOMEGALY [None]
  - HYPERTENSIVE CARDIOMYOPATHY [None]
  - LUNG INFILTRATION [None]
